FAERS Safety Report 17036026 (Version 1)
Quarter: 2019Q4

REPORT INFORMATION
  Report Type: Spontaneous
  Country: US (occurrence: US)
  Receive Date: 20191015
  Receipt Date: 20191015
  Transmission Date: 20200122
  Serious: No
  Sender: FDA-Public Use
  Company Number: None

PATIENT
  Age: 52 Year
  Sex: Male

DRUGS (1)
  1. LABETALOL HCL 200MG TABLETS [Suspect]
     Active Substance: LABETALOL HYDROCHLORIDE

REACTIONS (3)
  - Blood pressure systolic increased [None]
  - Product quality issue [None]
  - Ventricular extrasystoles [None]

NARRATIVE: CASE EVENT DATE: 20190901
